FAERS Safety Report 5356779-8 (Version None)
Quarter: 2007Q2

REPORT INFORMATION
  Report Type: 
  Country: None (occurrence: None)
  Receive Date: 20070614
  Receipt Date: 20060411
  Transmission Date: 20071010
  Serious: No
  Sender: FDA-Public Use
  Company Number: US-ASTRAZENECA-2006UW06403

PATIENT
  Age: 78 Year
  Sex: Male
  Weight: 81.2 kg

DRUGS (3)
  1. ATACAND [Suspect]
     Indication: BLOOD PRESSURE INCREASED
     Route: 048
  2. NEXIUM [Concomitant]
  3. ASPIRIN [Concomitant]

REACTIONS (3)
  - BURNING SENSATION [None]
  - BURNING SENSATION MUCOSAL [None]
  - GLOSSODYNIA [None]
